FAERS Safety Report 25423404 (Version 1)
Quarter: 2025Q2

REPORT INFORMATION
  Report Type: Spontaneous
  Country: US (occurrence: US)
  Receive Date: 20250611
  Receipt Date: 20250611
  Transmission Date: 20250717
  Serious: No
  Sender: BIOCRYST PHARMACEUTICALS
  Company Number: US-BIOCRYST PHARMACEUTICALS, INC.-2025BCR00491

PATIENT

DRUGS (9)
  1. ORLADEYO [Suspect]
     Active Substance: BEROTRALSTAT HYDROCHLORIDE
     Indication: Hereditary angioedema
     Dosage: 150 MG, QD
     Route: 048
  2. BACLOFEN [Concomitant]
     Active Substance: BACLOFEN
  3. OXYCODONE [Concomitant]
     Active Substance: OXYCODONE
  4. LASIX [Concomitant]
     Active Substance: FUROSEMIDE
  5. PROPRANOLOL [Concomitant]
     Active Substance: PROPRANOLOL HYDROCHLORIDE
  6. KALBITOR [Concomitant]
     Active Substance: ECALLANTIDE
  7. GABAPENTIN [Concomitant]
     Active Substance: GABAPENTIN
  8. WELLBUTRIN [Concomitant]
     Active Substance: BUPROPION HYDROCHLORIDE
  9. RUCONEST [Concomitant]
     Active Substance: CONESTAT ALFA

REACTIONS (1)
  - Tenoplasty [Unknown]
